FAERS Safety Report 5019721-5 (Version None)
Quarter: 2006Q2

REPORT INFORMATION
  Report Type: 
  Country: None (occurrence: None)
  Receive Date: 20060601
  Receipt Date: 20060524
  Transmission Date: 20061013
  Serious: Yes (Hospitalization)
  Sender: FDA-Public Use
  Company Number: 2006067927

PATIENT
  Age: 65 Year
  Sex: Female

DRUGS (1)
  1. LIPITOR [Suspect]
     Indication: ILL-DEFINED DISORDER
     Dosage: (10 MG), ORAL
     Route: 048
     Dates: end: 20060401

REACTIONS (2)
  - ENCEPHALOPATHY [None]
  - HEPATIC FAILURE [None]
